FAERS Safety Report 15340345 (Version 2)
Quarter: 2018Q3

REPORT INFORMATION
  Report Type: Spontaneous
  Country: FR (occurrence: FR)
  Receive Date: 20180831
  Receipt Date: 20180925
  Transmission Date: 20181010
  Serious: Yes (Hospitalization, Other)
  Sender: FDA-Public Use
  Company Number: FR-PFIZER INC-2018304606

PATIENT
  Age: 59 Year
  Sex: Female
  Weight: 70 kg

DRUGS (7)
  1. IBRANCE [Suspect]
     Active Substance: PALBOCICLIB
     Indication: TRIPLE NEGATIVE BREAST CANCER
     Dosage: 125 MG, CYCLIC (3 WEEKS OUT OF 4)
     Route: 048
     Dates: start: 20170504, end: 201801
  2. KETOPROFEN. [Concomitant]
     Active Substance: KETOPROFEN
     Indication: BONE PAIN
  3. FASLODEX [Concomitant]
     Active Substance: FULVESTRANT
     Indication: TRIPLE NEGATIVE BREAST CANCER
     Dosage: UNK
     Dates: start: 201705
  4. EUCREAS [Concomitant]
     Active Substance: METFORMIN HYDROCHLORIDE\VILDAGLIPTIN
  5. LEVOTHYROX [Concomitant]
     Active Substance: LEVOTHYROXINE
  6. CALCIDOSE [CALCIUM CARBONATE] [Concomitant]
     Active Substance: CALCIUM CARBONATE
  7. UN?ALFA [Concomitant]
     Active Substance: ALFACALCIDOL

REACTIONS (12)
  - Pyrexia [Unknown]
  - Chronic gastritis [Unknown]
  - Neoplasm progression [Unknown]
  - General physical health deterioration [Unknown]
  - Gastric ulcer haemorrhage [Unknown]
  - Abdominal pain upper [Unknown]
  - Back pain [Unknown]
  - Vomiting [Unknown]
  - Angina pectoris [Unknown]
  - Thyroid disorder [Unknown]
  - Gastroenteritis [Unknown]
  - Melaena [Unknown]

NARRATIVE: CASE EVENT DATE: 2017
